FAERS Safety Report 6488391-1 (Version None)
Quarter: 2009Q4

REPORT INFORMATION
  Report Type: 
  Country: None (occurrence: None)
  Receive Date: 20091210
  Receipt Date: 20090904
  Transmission Date: 20100525
  Serious: No
  Sender: FDA-Public Use
  Company Number: US-AMGEN-KDL363271

PATIENT
  Sex: Female

DRUGS (1)
  1. ENBREL [Suspect]
     Indication: RHEUMATOID ARTHRITIS
     Route: 058
     Dates: start: 20020801

REACTIONS (5)
  - FUNGAL INFECTION [None]
  - INJECTION SITE HAEMATOMA [None]
  - OSTEOARTHRITIS [None]
  - PNEUMONIA [None]
  - RHEUMATOID ARTHRITIS [None]
